FAERS Safety Report 6316981-5 (Version None)
Quarter: 2009Q3

REPORT INFORMATION
  Report Type: 
  Country: None (occurrence: None)
  Receive Date: 20090820
  Receipt Date: 20090810
  Transmission Date: 20100115
  Serious: Yes (Hospitalization)
  Sender: FDA-Public Use
  Company Number: US-GILEAD-2009-0023678

PATIENT
  Sex: Male
  Weight: 79.087 kg

DRUGS (4)
  1. TRUVADA [Suspect]
     Indication: HIV INFECTION
     Route: 048
     Dates: start: 20090522, end: 20090703
  2. MARAVIROC [Concomitant]
     Indication: HIV INFECTION
     Dates: start: 20090522, end: 20090703
  3. RALTEGRAVIR [Concomitant]
     Indication: HIV INFECTION
     Dates: start: 20090522, end: 20090703
  4. ETRAVIRINE [Concomitant]
     Indication: HIV INFECTION
     Dates: start: 20090522, end: 20090703

REACTIONS (1)
  - CHEST PAIN [None]
